FAERS Safety Report 16112546 (Version 1)
Quarter: 2019Q2

REPORT INFORMATION
  Report Type: Spontaneous
  Country: US (occurrence: US)
  Receive Date: 20190322
  Receipt Date: 20190322
  Transmission Date: 20190711
  Serious: No
  Sender: FDA-Public Use
  Company Number: None

PATIENT
  Age: 39 Year
  Sex: Female
  Weight: 63.05 kg

DRUGS (1)
  1. SUMATRIPTAN. [Suspect]
     Active Substance: SUMATRIPTAN
     Indication: MIGRAINE
     Dosage: ?          QUANTITY:2 LNJECTION(S);?

REACTIONS (4)
  - Product substitution issue [None]
  - Burning sensation [None]
  - Device malfunction [None]
  - Needle issue [None]

NARRATIVE: CASE EVENT DATE: 20170110
